FAERS Safety Report 5149748-4 (Version None)
Quarter: 2006Q4

REPORT INFORMATION
  Report Type: 
  Country: None (occurrence: None)
  Receive Date: 20061113
  Receipt Date: 20060803
  Transmission Date: 20070319
  Serious: Yes (Hospitalization)
  Sender: FDA-Public Use
  Company Number: GBWYE506303AUG06

PATIENT
  Sex: Female

DRUGS (12)
  1. ENBREL [Suspect]
     Indication: RHEUMATOID ARTHRITIS
     Route: 058
     Dates: start: 20040801, end: 20060415
  2. ENBREL [Suspect]
     Route: 058
     Dates: start: 20060401, end: 20060815
  3. PREDNISOLONE [Concomitant]
     Indication: RHEUMATOID ARTHRITIS
     Dosage: 5 MG FREQUENCY UNKNOWN
     Route: 048
  4. ANTIHYPERTENSIVES [Concomitant]
     Dosage: UNKNOWN
     Route: 048
  5. WARFARIN SODIUM [Concomitant]
     Indication: ATRIAL FIBRILLATION
     Dosage: UNKNOWN
     Route: 048
  6. SULINDAC [Concomitant]
     Dosage: UNKNOWN
     Route: 065
  7. CALCICHEW [Concomitant]
     Dosage: UNKNOWN
     Route: 065
  8. FOLIC ACID [Concomitant]
     Dosage: UNKNOWN
     Route: 065
  9. FOSAMAX [Concomitant]
     Dosage: UNKNOWN
     Route: 065
  10. LACIDIPINE [Concomitant]
     Dosage: UNKNOWN
     Route: 065
  11. CO-DYDRAMOL [Concomitant]
     Indication: ANALGESIC EFFECT
     Route: 065
  12. DIGOXIN [Concomitant]
     Indication: ATRIAL FIBRILLATION
     Dosage: UNKNOWN
     Route: 048

REACTIONS (1)
  - PEMPHIGOID [None]
